FAERS Safety Report 24602642 (Version 1)
Quarter: 2024Q4

REPORT INFORMATION
  Report Type: Report from Study
  Country: GB (occurrence: GB)
  Receive Date: 20241111
  Receipt Date: 20241111
  Transmission Date: 20250115
  Serious: Yes (Hospitalization)
  Sender: BAXTER
  Company Number: GB-BAXTER-2024BAX027261

PATIENT
  Age: 56 Year
  Sex: Female

DRUGS (14)
  1. WATER FOR INJECTION [Suspect]
     Active Substance: WATER
     Indication: Parenteral nutrition
     Dosage: [R], AT AN UNSPECIFIED DOSE AND FREQUENCY
     Route: 065
     Dates: start: 20241102, end: 20241103
  2. DEXTROSE [Suspect]
     Active Substance: DEXTROSE MONOHYDRATE
     Indication: Parenteral nutrition
     Dosage: (BP), AT AN UNSPECIFIED DOSE AND FREQUENCY
     Route: 065
     Dates: start: 20241102, end: 20241103
  3. ELECTROLYTES NOS\MINERALS [Suspect]
     Active Substance: ELECTROLYTES NOS\MINERALS
     Indication: Parenteral nutrition
     Dosage: [A], AT AN UNSPECIFIED DOSE AND FREQUENCY
     Route: 065
     Dates: start: 20241102, end: 20241103
  4. AMINO ACIDS, SOURCE UNSPECIFIED [Suspect]
     Active Substance: AMINO ACIDS, SOURCE UNSPECIFIED
     Indication: Parenteral nutrition
     Dosage: ([A] AMINOVEN 25), AT AN UNSPECIFIED DOSE AND FREQUENCY
     Route: 065
     Dates: start: 20241102, end: 20241103
  5. SMOFLIPID [Suspect]
     Active Substance: FISH OIL\MEDIUM-CHAIN TRIGLYCERIDES\OLIVE OIL\SOYBEAN OIL
     Indication: Parenteral nutrition
     Dosage: [A], AT AN UNSPECIFIED DOSE AND FREQUENCY
     Route: 065
     Dates: start: 20241102, end: 20241103
  6. ERGOCALCIFEROL\PHYTONADIONE\RETINOL\TOCOPHEROL [Suspect]
     Active Substance: ERGOCALCIFEROL\PHYTONADIONE\RETINOL\TOCOPHEROL
     Indication: Parenteral nutrition
     Dosage: [A], AT AN UNSPECIFIED DOSE AND FREQUENCY
     Route: 065
     Dates: start: 20241102, end: 20241103
  7. CALCIUM CHLORIDE [Suspect]
     Active Substance: CALCIUM CHLORIDE
     Indication: Parenteral nutrition
     Dosage: UNK
     Route: 065
     Dates: start: 20241102, end: 20241103
  8. MAGNESIUM SULFATE [Suspect]
     Active Substance: MAGNESIUM SULFATE
     Indication: Parenteral nutrition
     Dosage: (BAG), AT AN UNSPECIFIED DOSE AND FREQUENCY
     Route: 065
     Dates: start: 20241102, end: 20241103
  9. POTASSIUM CHLORIDE [Suspect]
     Active Substance: POTASSIUM CHLORIDE
     Indication: Parenteral nutrition
     Dosage: UNK
     Route: 065
     Dates: start: 20241102, end: 20241103
  10. SODIUM CHLORIDE [Suspect]
     Active Substance: SODIUM CHLORIDE
     Indication: Parenteral nutrition
     Dosage: UNK
     Route: 065
     Dates: start: 20241102, end: 20241103
  11. SODIUM GLYCEROPHOSPHATE [Suspect]
     Active Substance: SODIUM GLYCEROPHOSPHATE
     Indication: Parenteral nutrition
     Dosage: UNK
     Route: 065
     Dates: start: 20241102, end: 20241103
  12. VITAMINS [Suspect]
     Active Substance: VITAMINS
     Indication: Parenteral nutrition
     Dosage: UNK
     Route: 065
     Dates: start: 20241102, end: 20241103
  13. WATER FOR INJECTION [Suspect]
     Active Substance: WATER
     Indication: Parenteral nutrition
     Dosage: (WATER FOR TPN FORMULATIONS), AT AN UNSPECIFIED DOSE AND FREQUENCY
     Route: 065
     Dates: start: 20241102, end: 20241103
  14. UNSPECIFIED INGREDIENT [Suspect]
     Active Substance: UNSPECIFIED INGREDIENT
     Route: 065

REACTIONS (2)
  - Vomiting [Not Recovered/Not Resolved]
  - Pyrexia [Not Recovered/Not Resolved]

NARRATIVE: CASE EVENT DATE: 20241102
